FAERS Safety Report 17902627 (Version 1)
Quarter: 2020Q2

REPORT INFORMATION
  Report Type: Spontaneous
  Country: ES (occurrence: ES)
  Receive Date: 20200616
  Receipt Date: 20200616
  Transmission Date: 20200714
  Serious: Yes (Other)
  Sender: FDA-Public Use
  Company Number: ES-JAZZ-2020-ES-007401

PATIENT
  Age: 10 Year
  Sex: Male

DRUGS (3)
  1. VINCRISTINE [Suspect]
     Active Substance: VINCRISTINE
     Indication: B PRECURSOR TYPE ACUTE LEUKAEMIA
     Dosage: 1.5 MILLIGRAM/SQ. METER, 8, 15, 22 AND 29 OF THE CYCLE
     Route: 042
     Dates: start: 20200501, end: 20200512
  2. DAUNOBLASTINA [Suspect]
     Active Substance: DAUNORUBICIN
     Indication: B PRECURSOR TYPE ACUTE LEUKAEMIA
     Dosage: 30 MILLIGRAM/SQ. METER
     Route: 042
     Dates: start: 20200501, end: 20200512
  3. ASPARAGINASE [Suspect]
     Active Substance: ASPARAGINASE
     Indication: B PRECURSOR TYPE ACUTE LEUKAEMIA
     Dosage: 100 INTERNATIONAL UNIT, 1 TOTAL
     Route: 030
     Dates: start: 20200505, end: 20200505

REACTIONS (1)
  - Hepatitis acute [Recovering/Resolving]

NARRATIVE: CASE EVENT DATE: 20200507
